FAERS Safety Report 7585742-1 (Version None)
Quarter: 2011Q2

REPORT INFORMATION
  Report Type: 
  Country: None (occurrence: None)
  Receive Date: 20110629
  Receipt Date: 20110629
  Transmission Date: 20111010
  Serious: Yes (Hospitalization)
  Sender: FDA-Public Use
  Company Number: None

PATIENT
  Age: 44 Year
  Sex: Male
  Weight: 81.5114 kg

DRUGS (13)
  1. ROXICET ORAL SOLUTION [Concomitant]
  2. OMEPRAZOLE [Concomitant]
  3. METHADONE ORAL SOLUTION [Concomitant]
  4. ACETYLCYSTEINE [Concomitant]
  5. IMRT [Suspect]
     Dosage: 2GY/QD/RADIATION
     Dates: start: 20110523
  6. ZOFRAN [Concomitant]
  7. ATIVAN [Concomitant]
  8. ABRAXANE [Suspect]
     Indication: HEAD AND NECK CANCER
     Dosage: 50MG/M2; IV; QWK
     Route: 042
     Dates: start: 20110524
  9. DECADRON [Concomitant]
  10. CARBOPLATIN [Suspect]
     Dosage: 1.5 AUC; IV; QWK
     Route: 042
     Dates: start: 20110524
  11. MOUTHWASH [Concomitant]
  12. LIDOCAINE HCL VISCOUS [Concomitant]
  13. REGLAN [Concomitant]

REACTIONS (6)
  - NAUSEA [None]
  - MUCOSAL INFLAMMATION [None]
  - INCREASED UPPER AIRWAY SECRETION [None]
  - VOMITING [None]
  - DISEASE RECURRENCE [None]
  - FOOD INTOLERANCE [None]
